FAERS Safety Report 11457463 (Version 7)
Quarter: 2016Q1

REPORT INFORMATION
  Report Type: Report from Study
  Country: CA (occurrence: CA)
  Receive Date: 20150904
  Receipt Date: 20160324
  Transmission Date: 20160525
  Serious: Yes (Hospitalization)
  Sender: FDA-Public Use
  Company Number: CA-ROCHE-1455483

PATIENT
  Age: 48 Year
  Sex: Female
  Weight: 113 kg

DRUGS (4)
  1. APO-OMEPRAZOLE [Concomitant]
     Active Substance: OMEPRAZOLE
  2. METHOTREXATE [Concomitant]
     Active Substance: METHOTREXATE
  3. ACTEMRA [Suspect]
     Active Substance: TOCILIZUMAB
     Indication: RHEUMATOID ARTHRITIS
     Route: 042
     Dates: start: 20131017
  4. NOVO-DIFENAC [Concomitant]

REACTIONS (7)
  - Weight decreased [Unknown]
  - Infusion related reaction [Unknown]
  - Weight increased [Recovering/Resolving]
  - Gallbladder disorder [Recovered/Resolved]
  - Heart rate increased [Unknown]
  - Oxygen saturation decreased [Unknown]
  - Blood pressure increased [Unknown]

NARRATIVE: CASE EVENT DATE: 20140826
